FAERS Safety Report 21091184 (Version 1)
Quarter: 2022Q3

REPORT INFORMATION
  Report Type: Other
  Country: CA (occurrence: CA)
  Receive Date: 20220716
  Receipt Date: 20220716
  Transmission Date: 20221026
  Serious: Yes (Other)
  Sender: FDA-Public Use
  Company Number: CA-002147023-NVSC2020CA021748

PATIENT
  Age: 53 Year
  Sex: Female

DRUGS (21)
  1. XOLAIR [Suspect]
     Active Substance: OMALIZUMAB
     Indication: Asthma
     Route: 058
     Dates: start: 20200107
  2. XOLAIR [Suspect]
     Active Substance: OMALIZUMAB
     Route: 058
  3. XOLAIR [Suspect]
     Active Substance: OMALIZUMAB
     Route: 058
     Dates: start: 20200305
  4. XOLAIR [Suspect]
     Active Substance: OMALIZUMAB
     Route: 058
  5. XOLAIR [Suspect]
     Active Substance: OMALIZUMAB
     Route: 058
     Dates: start: 20200501
  6. XOLAIR [Suspect]
     Active Substance: OMALIZUMAB
     Route: 058
  7. XOLAIR [Suspect]
     Active Substance: OMALIZUMAB
     Route: 058
     Dates: start: 20200515
  8. XOLAIR [Suspect]
     Active Substance: OMALIZUMAB
     Route: 058
  9. XOLAIR [Suspect]
     Active Substance: OMALIZUMAB
     Route: 058
     Dates: start: 20210108
  10. XOLAIR [Suspect]
     Active Substance: OMALIZUMAB
     Dosage: 375 MG, Q2W
     Route: 058
  11. XOLAIR [Suspect]
     Active Substance: OMALIZUMAB
     Route: 058
     Dates: start: 20210319
  12. XOLAIR [Suspect]
     Active Substance: OMALIZUMAB
     Route: 058
  13. XOLAIR [Suspect]
     Active Substance: OMALIZUMAB
     Route: 058
  14. XOLAIR [Suspect]
     Active Substance: OMALIZUMAB
     Dosage: 375MG,BIW
     Route: 058
  15. NAPROXEN [Suspect]
     Active Substance: NAPROXEN
     Indication: Product used for unknown indication
     Dosage: UNK
     Route: 065
  16. ALVESCO [Concomitant]
     Active Substance: CICLESONIDE
     Indication: Product used for unknown indication
     Dosage: 2 OT
     Route: 055
  17. SPIRIVA [Concomitant]
     Active Substance: TIOTROPIUM BROMIDE MONOHYDRATE
     Indication: Product used for unknown indication
     Dosage: 1 DF
     Route: 055
  18. ADVAIR HFA [Concomitant]
     Active Substance: FLUTICASONE PROPIONATE\SALMETEROL XINAFOATE
     Indication: Product used for unknown indication
     Dosage: 500 UG, BID
     Route: 055
  19. ADVAIR HFA [Concomitant]
     Active Substance: FLUTICASONE PROPIONATE\SALMETEROL XINAFOATE
     Dosage: 250 UG, BID
     Route: 055
  20. MONTELUKAST [Concomitant]
     Active Substance: MONTELUKAST SODIUM
     Indication: Product used for unknown indication
     Dosage: 1 DF, QD
     Route: 031
  21. NASONEX [Concomitant]
     Active Substance: MOMETASONE FUROATE
     Indication: Gastrooesophageal reflux disease
     Dosage: 2 DF, BID
     Route: 048

REACTIONS (31)
  - Arrhythmia [Unknown]
  - Cellulitis [Unknown]
  - Palpitations [Unknown]
  - Oropharyngeal pain [Recovered/Resolved]
  - Muscular weakness [Unknown]
  - Chest discomfort [Unknown]
  - Dyspnoea [Unknown]
  - Nasal congestion [Unknown]
  - Sneezing [Unknown]
  - Rhinorrhoea [Unknown]
  - Vitamin D deficiency [Unknown]
  - Tachycardia [Unknown]
  - Body temperature decreased [Not Recovered/Not Resolved]
  - Tooth abscess [Unknown]
  - Discomfort [Unknown]
  - Gingival pain [Unknown]
  - Pain [Unknown]
  - Contusion [Unknown]
  - Hypersensitivity [Unknown]
  - Skin papilloma [Unknown]
  - Hyperkeratosis [Unknown]
  - Abscess oral [Unknown]
  - Fungal infection [Unknown]
  - Wheezing [Unknown]
  - Nausea [Recovered/Resolved]
  - Cough [Unknown]
  - Arthralgia [Unknown]
  - Erythema [Unknown]
  - Drug hypersensitivity [Unknown]
  - Asthma [Unknown]
  - Wrong technique in product usage process [Unknown]

NARRATIVE: CASE EVENT DATE: 20200320
